FAERS Safety Report 10064487 (Version 1)
Quarter: 2014Q2

REPORT INFORMATION
  Report Type: Spontaneous
  Country: GB (occurrence: None)
  Receive Date: 20140404
  Receipt Date: 20140404
  Transmission Date: 20141212
  Serious: Yes (Other)
  Sender: FDA-Public Use
  Company Number: AUR-APL-2014-04008

PATIENT
  Age: 85 Year
  Sex: Male

DRUGS (4)
  1. BISOPROLOL (BISOPROLOL) [Suspect]
     Indication: PRODUCT USED FOR UNKNOWN INDICATION
     Dosage: 1.25MG (1.25MG, 1 IN 1 D) ORAL
     Route: 048
     Dates: start: 20140205, end: 20140208
  2. AMLODIPINE (AMLODIPINE) [Concomitant]
  3. TAMSULOSIN (TAMSULOSIN) [Concomitant]
  4. WARFARIN (WARFARIN) [Concomitant]

REACTIONS (3)
  - Urticaria [None]
  - Swelling face [None]
  - Lip swelling [None]
